FAERS Safety Report 12099539 (Version 5)
Quarter: 2018Q3

REPORT INFORMATION
  Report Type: Spontaneous
  Country: GB (occurrence: GB)
  Receive Date: 20160222
  Receipt Date: 20180818
  Transmission Date: 20181010
  Serious: Yes (Disabling, Congenital Anomaly, Other)
  Sender: FDA-Public Use
  Company Number: GB-TEVA-634761ACC

PATIENT
  Sex: Female
  Weight: 3.2 kg

DRUGS (10)
  1. LAMOTRIGINE. [Suspect]
     Active Substance: LAMOTRIGINE
     Indication: SCHIZOPHRENIA
     Dosage: 300 MILLIGRAM DAILY; 300 MG, QD; DAILY DOSE: 300MILLIGRAM
     Route: 064
  2. CYCLIZINE [Concomitant]
     Active Substance: CYCLIZINE
     Route: 064
     Dates: start: 20130902
  3. CEFALEXIN [Concomitant]
     Active Substance: CEPHALEXIN
     Indication: URINARY TRACT INFECTION
     Route: 064
     Dates: start: 20130827
  4. VENTOLIN [Concomitant]
     Active Substance: ALBUTEROL SULFATE
     Route: 064
     Dates: start: 20131129
  5. CLARITHROMYCIN. [Concomitant]
     Active Substance: CLARITHROMYCIN
     Route: 064
     Dates: start: 20131129
  6. ZOPICLONE [Suspect]
     Active Substance: ZOPICLONE
     Indication: SCHIZOPHRENIA
     Dosage: 3.75 MILLIGRAM DAILY; 3.75 MG, QD; DAILY DOSE: 3.75MILLIGRAM
     Route: 064
  7. MIRTAZAPINE. [Suspect]
     Active Substance: MIRTAZAPINE
     Indication: SCHIZOPHRENIA
     Dosage: 300 MILLIGRAM DAILY; 300 MG, QD; DAILY DOSE: 300MILLIGRAM
     Route: 064
  8. ARIPIPRAZOLE. [Suspect]
     Active Substance: ARIPIPRAZOLE
     Indication: SCHIZOPHRENIA
     Dosage: 30 MILLIGRAM DAILY; 30 MG, QD; DAILY DOSE: 30MILLIGRAM
     Route: 064
  9. PROCYCLIDINE [Suspect]
     Active Substance: PROCYCLIDINE
     Indication: SCHIZOPHRENIA
     Dosage: 5 MILLIGRAM DAILY; 5 MG, QD; DAILY DOSE: 5MILLIGRAM
     Route: 064
  10. NICORETTE [Concomitant]
     Active Substance: NICOTINE
     Route: 064
     Dates: start: 20130808

REACTIONS (5)
  - Poor feeding infant [Unknown]
  - Developmental hip dysplasia [Unknown]
  - Agitation neonatal [Unknown]
  - Muscular weakness [Unknown]
  - Foetal exposure during pregnancy [Recovered/Resolved]

NARRATIVE: CASE EVENT DATE: 201402
